FAERS Safety Report 21112166 (Version 1)
Quarter: 2022Q3

REPORT INFORMATION
  Report Type: Spontaneous
  Country: US (occurrence: None)
  Receive Date: 20220721
  Receipt Date: 20220721
  Transmission Date: 20221027
  Serious: Yes (unspecified)
  Sender: FDA-Public Use
  Company Number: None

PATIENT
  Age: 59 Year
  Sex: Male
  Weight: 96 kg

DRUGS (1)
  1. CAPECITABINE [Suspect]
     Active Substance: CAPECITABINE
     Indication: Neoplasm malignant
     Dosage: FREQUENCY : TWICE A DAY;?
     Route: 048
     Dates: start: 20220420, end: 20220713

REACTIONS (6)
  - Diarrhoea [None]
  - Nausea [None]
  - Vomiting [None]
  - Hypokalaemia [None]
  - Palmar-plantar erythrodysaesthesia syndrome [None]
  - Condition aggravated [None]

NARRATIVE: CASE EVENT DATE: 20220713
